FAERS Safety Report 11542598 (Version 2)
Quarter: 2015Q4

REPORT INFORMATION
  Report Type: Spontaneous
  Country: US (occurrence: US)
  Receive Date: 20150923
  Receipt Date: 20151001
  Transmission Date: 20160304
  Serious: No
  Sender: FDA-Public Use
  Company Number: US-PFIZER INC-2015306694

PATIENT
  Age: 40 Year
  Sex: Female
  Weight: 70 kg

DRUGS (7)
  1. BOTOX [Concomitant]
     Active Substance: ONABOTULINUMTOXINA
     Indication: MIGRAINE
  2. RELPAX [Suspect]
     Active Substance: ELETRIPTAN HYDROBROMIDE
     Indication: MIGRAINE
     Dosage: 40MG TABLET 1 BY MOUTH AT THE ONSET OF MIGRAINE AND TAKE A SECOND ONE 2 HOURS LATER IF NEEDED
     Route: 048
  3. REBIF [Concomitant]
     Active Substance: INTERFERON BETA-1A
     Indication: MULTIPLE SCLEROSIS
     Dosage: TAKES ON MONDAY, WEDNESDAY, AND FRIDAY
  4. FLONASE [Concomitant]
     Active Substance: FLUTICASONE PROPIONATE
     Indication: DYSPNOEA
  5. ADVIL [Concomitant]
     Active Substance: IBUPROFEN
     Indication: MIGRAINE
  6. FLONASE [Concomitant]
     Active Substance: FLUTICASONE PROPIONATE
     Indication: HYPERSENSITIVITY
     Dosage: 50 ?G, 1X/DAY EVERY NIGHT 1 SPRAY EACH NOSTRIL DAILY
     Route: 045
  7. LEVOTHYROXINE. [Concomitant]
     Active Substance: LEVOTHYROXINE
     Indication: AUTOIMMUNE THYROIDITIS
     Dosage: 0.75 MG, 1X/DAY
     Route: 048

REACTIONS (7)
  - Weight fluctuation [Unknown]
  - Vertigo [Not Recovered/Not Resolved]
  - Feeling abnormal [Not Recovered/Not Resolved]
  - Balance disorder [Not Recovered/Not Resolved]
  - Dizziness [Not Recovered/Not Resolved]
  - Vitamin D deficiency [Not Recovered/Not Resolved]
  - Blood pressure increased [Unknown]

NARRATIVE: CASE EVENT DATE: 20150507
